FAERS Safety Report 7377774-3 (Version None)
Quarter: 2011Q1

REPORT INFORMATION
  Report Type: 
  Country: None (occurrence: None)
  Receive Date: 20110328
  Receipt Date: 20110315
  Transmission Date: 20110831
  Serious: Yes (Hospitalization, Other)
  Sender: FDA-Public Use
  Company Number: MX-TEVA-270222ISR

PATIENT
  Sex: Female
  Weight: 43 kg

DRUGS (6)
  1. FLUOROURACIL [Suspect]
     Indication: HEAD AND NECK CANCER
     Route: 042
     Dates: start: 20101201, end: 20110215
  2. OMEPRAZOLE [Concomitant]
  3. CISPLATIN [Suspect]
     Indication: HEAD AND NECK CANCER
     Route: 042
     Dates: start: 20101201, end: 20110215
  4. PARACETAMOL [Concomitant]
     Indication: PAIN
  5. DEXTROPROPOXYPHENE [Concomitant]
     Indication: PAIN
  6. CETUXIMAB [Suspect]
     Indication: HEAD AND NECK CANCER
     Route: 042
     Dates: start: 20101201, end: 20110215

REACTIONS (4)
  - DECREASED APPETITE [None]
  - HYPONATRAEMIA [None]
  - ASTHENIA [None]
  - DEHYDRATION [None]
